FAERS Safety Report 9010437 (Version 3)
Quarter: 2018Q2

REPORT INFORMATION
  Report Type: Report from Study
  Country: US (occurrence: US)
  Receive Date: 20130109
  Receipt Date: 20180425
  Transmission Date: 20180711
  Serious: Yes (Hospitalization, Other)
  Sender: FDA-Public Use
  Company Number: US-ROCHE-1177039

PATIENT
  Age: 55 Year
  Sex: Male
  Weight: 91.25 kg

DRUGS (20)
  1. NUTROPIN [Suspect]
     Active Substance: SOMATROPIN
     Dosage: 7 INJECTIONS PER WEEK
     Route: 058
  2. TESTOSTERONE. [Concomitant]
     Active Substance: TESTOSTERONE
     Route: 065
  3. LOSARTAN. [Concomitant]
     Active Substance: LOSARTAN
     Route: 065
  4. AMITRIPTYLINE [Concomitant]
     Active Substance: AMITRIPTYLINE
     Dosage: QHS
     Route: 048
  5. VITAMIN C [Concomitant]
     Active Substance: ASCORBIC ACID
  6. METOPROLOL. [Concomitant]
     Active Substance: METOPROLOL
     Route: 048
  7. VITAMIN E [Concomitant]
     Active Substance: .ALPHA.-TOCOPHEROL
  8. OXCARBAZEPINE. [Concomitant]
     Active Substance: OXCARBAZEPINE
     Route: 048
  9. MEMANTINE. [Concomitant]
     Active Substance: MEMANTINE
     Route: 065
  10. SYSTANE (HYPROMELLOSE 2910 (4000 MPA.S)) [Concomitant]
     Active Substance: HYPROMELLOSE 2910 (4000 MPA.S)
  11. NUTROPIN [Suspect]
     Active Substance: SOMATROPIN
     Indication: PRODUCT USED FOR UNKNOWN INDICATION
     Dosage: NUSPIN 5
     Route: 058
     Dates: start: 20100101
  12. DONEPEZIL. [Concomitant]
     Active Substance: DONEPEZIL
     Route: 065
  13. FAMOTIDINE. [Concomitant]
     Active Substance: FAMOTIDINE
     Route: 048
  14. PROPANOLOL [Concomitant]
     Active Substance: PROPRANOLOL HYDROCHLORIDE
     Route: 048
  15. RESTASIS [Concomitant]
     Active Substance: CYCLOSPORINE
  16. BACLOFEN. [Concomitant]
     Active Substance: BACLOFEN
     Route: 048
  17. BIOTIN [Concomitant]
     Active Substance: BIOTIN
  18. CYCLOGYL [Concomitant]
     Active Substance: CYCLOPENTOLATE HYDROCHLORIDE
  19. LEVOTHYROXINE. [Concomitant]
     Active Substance: LEVOTHYROXINE
     Route: 048
  20. FISH OIL [Concomitant]
     Active Substance: FISH OIL

REACTIONS (49)
  - Bladder cancer [Not Recovered/Not Resolved]
  - Pollakiuria [Unknown]
  - Constipation [Unknown]
  - Haemoglobin decreased [Unknown]
  - Disturbance in attention [Unknown]
  - Acne [Unknown]
  - Decreased appetite [Unknown]
  - Arthralgia [Unknown]
  - Dizziness [Unknown]
  - Erectile dysfunction [Unknown]
  - Blood potassium abnormal [Unknown]
  - Aspartate aminotransferase increased [Unknown]
  - Balance disorder [Unknown]
  - Nocturia [Unknown]
  - Eye pain [Unknown]
  - Asthenia [Unknown]
  - Gait disturbance [Unknown]
  - Cortisol increased [Unknown]
  - Lipids increased [Unknown]
  - Urinary hesitation [Unknown]
  - Tremor [Unknown]
  - Syncope [Unknown]
  - Memory impairment [Unknown]
  - Urinary incontinence [Unknown]
  - Decreased interest [Unknown]
  - Panic attack [Unknown]
  - Fatigue [Unknown]
  - Paraesthesia [Unknown]
  - Temperature intolerance [Unknown]
  - Hyperhidrosis [Unknown]
  - Vomiting [Unknown]
  - Palpitations [Unknown]
  - Restlessness [Unknown]
  - Asthenopia [Unknown]
  - Aphasia [Unknown]
  - Blood testosterone decreased [Unknown]
  - Thyroxine free decreased [Unknown]
  - Dyspnoea [Unknown]
  - Weight decreased [Unknown]
  - Contusion [Unknown]
  - Myalgia [Unknown]
  - Oedema [Unknown]
  - Bronchitis [Unknown]
  - Transaminases increased [Unknown]
  - Libido decreased [Unknown]
  - Dysarthria [Unknown]
  - Abdominal pain [Unknown]
  - Rash [Unknown]
  - Alanine aminotransferase increased [Unknown]

NARRATIVE: CASE EVENT DATE: 201103
